FAERS Safety Report 21644667 (Version 2)
Quarter: 2022Q4

REPORT INFORMATION
  Report Type: Spontaneous
  Country: PL (occurrence: None)
  Receive Date: 20221125
  Receipt Date: 20221130
  Transmission Date: 20230113
  Serious: Yes (Hospitalization, Other)
  Sender: FDA-Public Use
  Company Number: 2022A380758

PATIENT
  Age: 70 Year
  Sex: Female

DRUGS (1)
  1. QUETIAPINE [Suspect]
     Active Substance: QUETIAPINE
     Route: 048

REACTIONS (7)
  - Rapid eye movement sleep behaviour disorder [Unknown]
  - Pneumonia [Unknown]
  - Acinetobacter test positive [Unknown]
  - Hypersensitivity [Unknown]
  - Neuroleptic malignant syndrome [Unknown]
  - Aggression [Unknown]
  - Delusion [Unknown]
